FAERS Safety Report 7894490-X (Version None)
Quarter: 2011Q4

REPORT INFORMATION
  Report Type: 
  Country: None (occurrence: None)
  Receive Date: 20111106
  Receipt Date: 20110826
  Transmission Date: 20120403
  Serious: No
  Sender: FDA-Public Use
  Company Number: US-AMGEN-USASP2011043883

PATIENT
  Age: 78 Year
  Sex: Female

DRUGS (4)
  1. OXYBUTYNIN [Concomitant]
  2. ZOCOR [Concomitant]
  3. TRAZODONE HYDROCHLORIDE [Concomitant]
  4. ENBREL [Suspect]
     Indication: RHEUMATOID ARTHRITIS
     Dosage: 50 MG, QWK
     Dates: start: 20051101

REACTIONS (1)
  - PETECHIAE [None]
